FAERS Safety Report 16328373 (Version 2)
Quarter: 2021Q3

REPORT INFORMATION
  Report Type: Spontaneous
  Country: DE (occurrence: DE)
  Receive Date: 20190518
  Receipt Date: 20210826
  Transmission Date: 20211014
  Serious: Yes (Other)
  Sender: FDA-Public Use
  Company Number: DE-SUN PHARMACEUTICAL INDUSTRIES LTD-2019RR-208194

PATIENT
  Age: 39 Year
  Sex: Female
  Weight: 65 kg

DRUGS (1)
  1. CIPROFLOXACIN. [Suspect]
     Active Substance: CIPROFLOXACIN
     Indication: URINARY TRACT INFECTION
     Dosage: 500 MILLIGRAM, INSGESAMT 10X500 MG
     Route: 048
     Dates: start: 20150102, end: 20150112

REACTIONS (16)
  - Condition aggravated [Recovered/Resolved with Sequelae]
  - Abdominal discomfort [Unknown]
  - Asthenia [Recovered/Resolved with Sequelae]
  - Urinary tract infection [Recovered/Resolved with Sequelae]
  - Weight decreased [Recovering/Resolving]
  - Food intolerance [Recovering/Resolving]
  - Impaired work ability [Not Recovered/Not Resolved]
  - Fatigue [Recovered/Resolved with Sequelae]
  - Feeling cold [Recovered/Resolved with Sequelae]
  - Muscle atrophy [Recovered/Resolved with Sequelae]
  - Panic attack [Not Recovered/Not Resolved]
  - Anxiety [Not Recovered/Not Resolved]
  - Loss of personal independence in daily activities [Recovered/Resolved with Sequelae]
  - Diarrhoea [Recovering/Resolving]
  - Sexual dysfunction [Unknown]
  - Exercise tolerance decreased [Not Recovered/Not Resolved]

NARRATIVE: CASE EVENT DATE: 20150105
